FAERS Safety Report 7838002-5 (Version None)
Quarter: 2011Q4

REPORT INFORMATION
  Report Type: 
  Country: None (occurrence: None)
  Receive Date: 20111024
  Receipt Date: 20110620
  Transmission Date: 20120403
  Serious: No
  Sender: FDA-Public Use
  Company Number: US-ABBOTT-11P-163-0726535-00

PATIENT
  Sex: Female
  Weight: 79.45 kg

DRUGS (5)
  1. LUPRON DEPOT [Suspect]
     Indication: UTERINE LEIOMYOMA
     Route: 030
     Dates: start: 20110301, end: 20110427
  2. PROZAC [Concomitant]
     Indication: MOOD SWINGS
  3. UNKNOWN ADD BACK THERAPY [Concomitant]
     Indication: PRODUCT USED FOR UNKNOWN INDICATION
     Dates: start: 20110301
  4. AYGESTIN [Suspect]
     Indication: MENOPAUSAL SYMPTOMS
  5. PROZAC [Concomitant]
     Indication: PROPHYLAXIS

REACTIONS (5)
  - PARAESTHESIA [None]
  - BACK PAIN [None]
  - VAGINAL HAEMORRHAGE [None]
  - ABDOMINAL DISCOMFORT [None]
  - DEEP VEIN THROMBOSIS [None]
